FAERS Safety Report 16310358 (Version 1)
Quarter: 2019Q2

REPORT INFORMATION
  Report Type: Spontaneous
  Country: US (occurrence: US)
  Receive Date: 20190514
  Receipt Date: 20190514
  Transmission Date: 20190711
  Serious: No
  Sender: FDA-Public Use
  Company Number: US-BAYER-2019-094901

PATIENT
  Age: 87 Year
  Sex: Male
  Weight: 82 kg

DRUGS (9)
  1. FLEXIJOINT [GLUCOSAMINE SULFATE] [Concomitant]
  2. MIRALAX [Suspect]
     Active Substance: POLYETHYLENE GLYCOL 3350
     Indication: GASTROINTESTINAL DISORDER
     Dosage: 1 DF, QD
     Route: 048
     Dates: start: 20190501
  3. WARFARIN [Concomitant]
     Active Substance: WARFARIN
  4. SENOKOT [Concomitant]
     Active Substance: SENNOSIDES
  5. ATORVASTATIN [Concomitant]
     Active Substance: ATORVASTATIN
  6. ASCORBIC ACID. [Concomitant]
     Active Substance: ASCORBIC ACID
  7. CYANOCOBALAMIN. [Concomitant]
     Active Substance: CYANOCOBALAMIN
  8. MIRALAX [Suspect]
     Active Substance: POLYETHYLENE GLYCOL 3350
     Indication: GASTROINTESTINAL DISORDER
     Dosage: 0.5 DF, QD
     Route: 048
     Dates: start: 20190506
  9. TAMSULOSIN [Concomitant]
     Active Substance: TAMSULOSIN

REACTIONS (3)
  - Incorrect dose administered [Unknown]
  - Therapeutic product effect incomplete [None]
  - Bowel movement irregularity [Unknown]

NARRATIVE: CASE EVENT DATE: 20190501
